FAERS Safety Report 19014371 (Version 3)
Quarter: 2021Q3

REPORT INFORMATION
  Report Type: Spontaneous
  Country: US (occurrence: US)
  Receive Date: 20210316
  Receipt Date: 20210830
  Transmission Date: 20211014
  Serious: No
  Sender: FDA-Public Use
  Company Number: US-AMGEN-USASP2021040475

PATIENT
  Age: 70 Year
  Sex: Female
  Weight: 59.86 kg

DRUGS (1)
  1. EVENITY [Suspect]
     Active Substance: ROMOSOZUMAB-AQQG
     Indication: OSTEOPOROSIS POSTMENOPAUSAL
     Dosage: UNK, QMO
     Route: 065

REACTIONS (3)
  - Dizziness [Unknown]
  - Gastrooesophageal reflux disease [Recovered/Resolved]
  - Vision blurred [Unknown]
